FAERS Safety Report 5917670-9 (Version None)
Quarter: 2008Q4

REPORT INFORMATION
  Report Type: 
  Country: None (occurrence: None)
  Receive Date: 20081014
  Receipt Date: 20081003
  Transmission Date: 20090506
  Serious: Yes (Other)
  Sender: FDA-Public Use
  Company Number: JP-SANOFI-SYNTHELABO-A01200803620

PATIENT
  Sex: Male

DRUGS (5)
  1. ITOROL [Concomitant]
     Indication: ANGINA PECTORIS
     Route: 048
     Dates: start: 20070801
  2. CONIEL [Concomitant]
     Indication: ANGINA PECTORIS
     Route: 048
     Dates: start: 20070801
  3. ASPIRIN [Concomitant]
     Indication: ANGINA PECTORIS
     Route: 048
     Dates: start: 20070801
  4. PLAVIX [Suspect]
     Indication: ANGINA PECTORIS
     Dosage: 300 MG ONCE FOLLOWED BY 75 MG DAILY
     Route: 048
     Dates: start: 20080304
  5. PLAVIX [Suspect]
     Indication: STENT PLACEMENT
     Dosage: 300 MG ONCE FOLLOWED BY 75 MG DAILY
     Route: 048
     Dates: start: 20080304

REACTIONS (1)
  - BLOOD CREATINE PHOSPHOKINASE INCREASED [None]
